FAERS Safety Report 4373226-3 (Version None)
Quarter: 2004Q2

REPORT INFORMATION
  Report Type: 
  Country: None (occurrence: None)
  Receive Date: 20040608
  Receipt Date: 20040528
  Transmission Date: 20050107
  Serious: Yes (Hospitalization, Other)
  Sender: FDA-Public Use
  Company Number: MY0420

PATIENT
  Sex: Female

DRUGS (3)
  1. LOTRONEX [Suspect]
     Indication: DRUG USE FOR UNKNOWN INDICATION
     Dosage: 1MG PER DAY
     Route: 048
     Dates: start: 20031201, end: 20040301
  2. SYNTHROID [Concomitant]
  3. PREVACID [Concomitant]

REACTIONS (3)
  - ABDOMINAL PAIN [None]
  - BACTERIAL INFECTION [None]
  - DIVERTICULAR PERFORATION [None]
